FAERS Safety Report 7948293-8 (Version None)
Quarter: 2011Q4

REPORT INFORMATION
  Report Type: 
  Country: None (occurrence: None)
  Receive Date: 20111130
  Receipt Date: 20111128
  Transmission Date: 20120403
  Serious: No
  Sender: FDA-Public Use
  Company Number: US-PFIZER INC-2011290212

PATIENT
  Sex: Female
  Weight: 63.492 kg

DRUGS (3)
  1. PROTONIX [Suspect]
     Indication: GASTROOESOPHAGEAL REFLUX DISEASE
  2. PROTONIX [Suspect]
     Indication: GASTRITIS
     Dosage: 40 MG, DAILY
     Route: 048
  3. PROTONIX [Suspect]
     Indication: GASTRIC DISORDER

REACTIONS (3)
  - INFECTION [None]
  - DRUG INEFFECTIVE [None]
  - EPIGASTRIC DISCOMFORT [None]
